FAERS Safety Report 21073475 (Version 1)
Quarter: 2022Q3

REPORT INFORMATION
  Report Type: Spontaneous
  Country: EG (occurrence: EG)
  Receive Date: 20220713
  Receipt Date: 20220713
  Transmission Date: 20221027
  Serious: Yes (Death, Life-Threatening, Hospitalization)
  Sender: FDA-Public Use
  Company Number: EG-STRIDES ARCOLAB LIMITED-2022SP008712

PATIENT
  Age: 43 Year
  Sex: Male

DRUGS (3)
  1. DIAZEPAM [Suspect]
     Active Substance: DIAZEPAM
     Indication: Sleep disorder
     Dosage: 10 MILLIGRAM (UNINTENTIONALLY TOOK 10 TABLETS OVER A PERIOD OF 24 HOURS)
     Route: 065
  2. DIAZEPAM [Suspect]
     Active Substance: DIAZEPAM
     Indication: Anxiety
  3. LIRAGLUTIDE [Concomitant]
     Active Substance: LIRAGLUTIDE
     Indication: Weight decreased
     Dosage: UNK
     Route: 058

REACTIONS (11)
  - Depressed level of consciousness [Fatal]
  - Respiratory depression [Fatal]
  - Cardiac arrest [Fatal]
  - Apnoea [Unknown]
  - Shock [Unknown]
  - Renal impairment [Unknown]
  - Metabolic acidosis [Unknown]
  - Respiratory acidosis [Unknown]
  - Coma [Unknown]
  - Hypotension [Unknown]
  - Overdose [Fatal]
